FAERS Safety Report 22139093 (Version 5)
Quarter: 2024Q3

REPORT INFORMATION
  Report Type: Report from Study
  Country: US (occurrence: US)
  Receive Date: 20230327
  Receipt Date: 20240712
  Transmission Date: 20241017
  Serious: No
  Sender: ACADIA PHARMACEUTICALS
  Company Number: US-ACADIA PHARMACEUTICALS INC.-ACA-2023-PIM-000879

PATIENT
  Sex: Female

DRUGS (3)
  1. NUPLAZID [Suspect]
     Active Substance: PIMAVANSERIN TARTRATE
     Indication: Parkinson^s disease psychosis
     Dosage: 34 MILLIGRAM, QD
     Route: 048
  2. NUPLAZID [Suspect]
     Active Substance: PIMAVANSERIN TARTRATE
     Indication: Parkinson^s disease
     Dosage: 34 MILLIGRAM, QD
     Route: 048
     Dates: start: 20230421
  3. MIRTAZAPINE [Concomitant]
     Active Substance: MIRTAZAPINE
     Dosage: 15 MILLIGRAM, QD

REACTIONS (11)
  - Therapeutic product effect incomplete [Not Recovered/Not Resolved]
  - Vomiting [Unknown]
  - Stress [Unknown]
  - Hallucination [Not Recovered/Not Resolved]
  - Nausea [Unknown]
  - Nausea [Unknown]
  - Hallucination [Unknown]
  - Hallucination [Unknown]
  - Constipation [Unknown]
  - Confusional state [Unknown]
  - Confusional state [Unknown]
